FAERS Safety Report 6060142-4 (Version None)
Quarter: 2009Q1

REPORT INFORMATION
  Report Type: 
  Country: None (occurrence: None)
  Receive Date: 20090128
  Receipt Date: 20090120
  Transmission Date: 20090719
  Serious: Yes (Death, Hospitalization)
  Sender: FDA-Public Use
  Company Number: TIF2009A00007

PATIENT
  Age: 61 Year
  Sex: Male

DRUGS (5)
  1. ACTOS [Suspect]
     Indication: DIABETES MELLITUS
     Dosage: 30 MG (30 MG,1 IN 1 D), ORAL
     Route: 048
     Dates: start: 20071201, end: 20081204
  2. GLICONORM [Suspect]
     Indication: DIABETES MELLITUS
     Dosage: 1 TAB. (1 IN 1 D) ORAL
     Route: 048
     Dates: start: 20070301, end: 20081204
  3. IRBESARTAN [Concomitant]
  4. TIMOPTIC [Concomitant]
  5. AZOPT [Concomitant]

REACTIONS (8)
  - AORTIC ARTERIOSCLEROSIS [None]
  - ARTERIOSCLEROSIS CORONARY ARTERY [None]
  - ASCITES [None]
  - HEPATIC FAILURE [None]
  - HYPOGLYCAEMIA [None]
  - METABOLIC ACIDOSIS [None]
  - PULMONARY CONGESTION [None]
  - PULMONARY OEDEMA [None]
